FAERS Safety Report 8684969 (Version 3)
Quarter: 2012Q4

REPORT INFORMATION
  Report Type: Report from Study
  Country: DE (occurrence: DE)
  Receive Date: 20120726
  Receipt Date: 20120914
  Transmission Date: 20130627
  Serious: Yes (Life-Threatening, Hospitalization)
  Sender: FDA-Public Use
  Company Number: DE-TEVA-347536GER

PATIENT
  Age: 39 Year
  Sex: Female
  Weight: 77 kg

DRUGS (6)
  1. MYOCET [Suspect]
     Indication: BREAST CANCER
     Route: 042
     Dates: start: 20120507, end: 20120709
  2. PACLITAXEL [Suspect]
     Indication: BREAST CANCER
     Route: 042
     Dates: start: 20120507, end: 20120709
  3. LAPATINIB [Suspect]
     Indication: BREAST CANCER
     Dosage: 750 Milligram Daily;
     Route: 048
     Dates: start: 20120507, end: 20120614
  4. HERCEPTIN [Suspect]
     Indication: BREAST CANCER
     Route: 042
     Dates: start: 20120507, end: 20120709
  5. PARACETAMOL [Concomitant]
     Dates: start: 20120706, end: 20120707
  6. THYRANOJOD [Concomitant]

REACTIONS (5)
  - Interstitial lung disease [Recovered/Resolved]
  - Multi-organ disorder [Recovered/Resolved]
  - Pulmonary mycosis [Recovered/Resolved]
  - Pneumonia viral [Recovered/Resolved]
  - Respiratory failure [Recovered/Resolved]
